FAERS Safety Report 8978196 (Version 1)
Quarter: 2012Q4

REPORT INFORMATION
  Report Type: 
  Country: DE (occurrence: DE)
  Receive Date: 20121220
  Receipt Date: 20121220
  Transmission Date: 20130627
  Serious: Yes (Hospitalization)
  Sender: FDA-Public Use
  Company Number: PHHO2012DE018074

PATIENT
  Age: 72 Year
  Sex: Male
  Weight: 67.1 kg

DRUGS (21)
  1. MYCOPHENOLATE MOFETIL [Suspect]
     Indication: RENAL TRANSPLANT
     Dosage: 500 mg, 4 in 1 D
     Route: 048
     Dates: start: 20100522, end: 20100701
  2. MYCOPHENOLATE MOFETIL [Suspect]
     Dosage: 100 mg, UNK
     Route: 048
     Dates: start: 20100704
  3. MYCOPHENOLATE MOFETIL [Suspect]
     Dosage: 150 mg, UNK
     Route: 048
     Dates: start: 20100705
  4. MYCOPHENOLATE MOFETIL [Suspect]
     Dosage: 500 mg, 3 in 1 D
     Route: 048
  5. TACROLIMUS [Suspect]
     Indication: RENAL TRANSPLANT
     Dosage: 6 mg, QD
     Route: 048
     Dates: start: 20100522
  6. PREDNISOLONE [Suspect]
     Indication: RENAL TRANSPLANT
     Dosage: 25 mg, QD
     Route: 048
     Dates: start: 20100522
  7. BASILIXIMAB [Suspect]
     Indication: RENAL TRANSPLANT
     Dosage: 75 mg, QD
     Route: 042
     Dates: start: 20100522
  8. THYMOGLOBULINE [Suspect]
     Indication: RENAL TRANSPLANT
     Dosage: 75 mg, QD
     Route: 042
     Dates: start: 20100522
  9. LIPOX [Suspect]
     Dosage: 1 DF, ONCE/SINGLE
  10. NEORECORMON [Concomitant]
     Dosage: TTD: 5000 IE
  11. DIGITOXIN [Concomitant]
     Dosage: TTD 1 dose form
     Dates: start: 20100528
  12. ASPIRIN [Concomitant]
     Dosage: UNK
  13. FLUVASTATIN [Concomitant]
     Dosage: UNK
     Dates: start: 20100523
  14. FURORESE [Concomitant]
     Dosage: 40 mg, UNK
  15. AMLODIPINE [Concomitant]
     Dosage: 2 DF, ONCE/SINGLE
  16. CALCITRIOL [Concomitant]
     Dosage: 0.25 mg, ONCE/SINGLE
  17. COTRIM [Concomitant]
     Dosage: 480 mg, ONCE/SINGLE
  18. ARANESP [Concomitant]
     Dosage: 1 DF, QW
  19. ATACAND [Concomitant]
     Dosage: 2 DF, ONCE/SINGLE
  20. PANTOPRAZOLE [Concomitant]
     Dosage: 1 DF, QD
  21. BISOPROLOL [Concomitant]
     Dosage: 10 mg, ONCE/SINGLE
     Dates: start: 20100527

REACTIONS (5)
  - Cytomegalovirus infection [Not Recovered/Not Resolved]
  - General physical health deterioration [Recovered/Resolved]
  - Diarrhoea [Recovered/Resolved]
  - Pyrexia [Unknown]
  - Leukopenia [Unknown]
